FAERS Safety Report 10199929 (Version 1)
Quarter: 2014Q2

REPORT INFORMATION
  Report Type: Spontaneous
  Country: US (occurrence: US)
  Receive Date: 20140527
  Receipt Date: 20140527
  Transmission Date: 20141212
  Serious: No
  Sender: FDA-Public Use
  Company Number: US-NOVEN-14US009080

PATIENT
  Age: 6 Year
  Sex: Female

DRUGS (1)
  1. DAYTRANA [Suspect]
     Indication: PRODUCT USED FOR UNKNOWN INDICATION
     Dosage: 10 MG, UNK
     Route: 062

REACTIONS (5)
  - Onychophagia [Not Recovered/Not Resolved]
  - Drug effect delayed [Unknown]
  - Tic [Recovered/Resolved]
  - Skin irritation [Recovered/Resolved]
  - Off label use [Recovered/Resolved]
